FAERS Safety Report 6482593-6 (Version None)
Quarter: 2009Q4

REPORT INFORMATION
  Report Type: 
  Country: None (occurrence: None)
  Receive Date: 20091209
  Receipt Date: 20091202
  Transmission Date: 20100525
  Serious: Yes (Life-Threatening, Hospitalization)
  Sender: FDA-Public Use
  Company Number: GB-RANBAXY-2009RR-29543

PATIENT
  Age: 81 Year
  Sex: Female

DRUGS (6)
  1. CIPROFLOXACIN [Suspect]
     Indication: URINARY TRACT INFECTION
     Dosage: 500 MG, BID
     Route: 048
     Dates: start: 20091002, end: 20091007
  2. EPILIM [Concomitant]
  3. FENTANYL [Concomitant]
     Route: 062
  4. FUROSEMIDE [Concomitant]
  5. LEVOTHYROXINE SODIUM [Concomitant]
  6. WARFARIN SODIUM [Concomitant]

REACTIONS (3)
  - GRAND MAL CONVULSION [None]
  - LOSS OF CONSCIOUSNESS [None]
  - POSTICTAL PARALYSIS [None]
